FAERS Safety Report 9489473 (Version 1)
Quarter: 2013Q3

REPORT INFORMATION
  Report Type: Report from Study
  Country: ES (occurrence: ES)
  Receive Date: 20130829
  Receipt Date: 20130829
  Transmission Date: 20140515
  Serious: Yes (Death, Hospitalization)
  Sender: FDA-Public Use
  Company Number: PHHY2013ES094020

PATIENT
  Sex: Male

DRUGS (13)
  1. MYCOPHENOLATE MOFETIL [Suspect]
     Dates: start: 20110130
  2. PREDNISONE [Suspect]
     Dates: start: 20100304
  3. BELATACEPT [Suspect]
     Indication: RENAL TRANSPLANT
     Route: 042
     Dates: start: 20070205, end: 20130516
  4. ADIRO [Concomitant]
     Dates: start: 20071114
  5. HEMOVAS [Concomitant]
     Dates: start: 20120103
  6. COROPRES [Concomitant]
     Dates: start: 20120327
  7. SEGURIL [Concomitant]
     Dates: start: 20120720
  8. OMEPRAZOLE [Concomitant]
     Dates: start: 20120109
  9. INSULIN [Concomitant]
     Dates: start: 20070208
  10. ALDACTONE [Concomitant]
  11. NORVAS [Concomitant]
  12. CARDURAN [Concomitant]
     Dates: start: 20121109
  13. MINITRAN [Concomitant]
     Dates: start: 20121109

REACTIONS (4)
  - Pneumonia [Fatal]
  - Sepsis [Fatal]
  - Multi-organ failure [Fatal]
  - Renal failure acute [Fatal]
